FAERS Safety Report 9200785 (Version 1)
Quarter: 2013Q1

REPORT INFORMATION
  Report Type: Spontaneous
  Country: GB (occurrence: None)
  Receive Date: 20130328
  Receipt Date: 20130328
  Transmission Date: 20140127
  Serious: Yes (Other)
  Sender: FDA-Public Use
  Company Number: 2013-05272

PATIENT
  Age: 91 Year
  Sex: Female
  Weight: 62 kg

DRUGS (10)
  1. DONEPEZIL HYDROCHLORIDE [Suspect]
     Route: 048
     Dates: start: 20130109
  2. CLOPIDOGREL (CLOPIDOGREL) [Concomitant]
  3. SIMVASTATIN (SIMVASTATIN) [Concomitant]
  4. RAMIPRIL (RAMIPRIL) [Concomitant]
  5. AMITRIPTYLINE (AMITRIPTYLINE) [Concomitant]
  6. MOVICOL [Concomitant]
  7. PARACETAMOL (PARACETAMOL) [Concomitant]
  8. ALENDRONIC ACID (ALENDRONIC ACID) [Concomitant]
  9. ADCAL (CALCIUM CARBONATE) [Concomitant]
  10. LANSOPRAZOLE (LANSOPRAZOLE) [Concomitant]

REACTIONS (10)
  - Nausea [None]
  - Dizziness [None]
  - Decreased appetite [None]
  - Fatigue [None]
  - Headache [None]
  - Fluid intake reduced [None]
  - Hypophagia [None]
  - Dehydration [None]
  - Weight decreased [None]
  - Activities of daily living impaired [None]
